FAERS Safety Report 11116295 (Version 1)
Quarter: 2015Q2

REPORT INFORMATION
  Report Type: Spontaneous
  Country: IT (occurrence: IT)
  Receive Date: 20150515
  Receipt Date: 20150515
  Transmission Date: 20150821
  Serious: Yes (Other)
  Sender: FDA-Public Use
  Company Number: PHHY2015IT056642

PATIENT
  Age: 74 Year
  Sex: Male

DRUGS (7)
  1. PRAMIPEXOLE [Suspect]
     Active Substance: PRAMIPEXOLE
     Dosage: 0.7 UNK, 5 TIMES A DAY
     Route: 065
  2. LEVODOPA [Concomitant]
     Active Substance: LEVODOPA
     Dosage: 1400 MG/DAY
     Route: 065
  3. LEVODOPA [Concomitant]
     Active Substance: LEVODOPA
     Indication: PARKINSON^S DISEASE
     Dosage: 600 MG/DAY
     Route: 065
  4. RASAGILINE [Concomitant]
     Active Substance: RASAGILINE
     Indication: PARKINSON^S DISEASE
     Dosage: 1 MG/DAY
     Route: 065
  5. PRAMIPEXOLE [Suspect]
     Active Substance: PRAMIPEXOLE
     Indication: PARKINSON^S DISEASE
     Dosage: 2.1 MG DAILY
     Route: 065
  6. PRAMIPEXOLE [Suspect]
     Active Substance: PRAMIPEXOLE
     Indication: PARKINSON^S DISEASE
     Dosage: 0.7 MG, TID
     Route: 065
  7. AMANTADINE [Concomitant]
     Active Substance: AMANTADINE
     Indication: PARKINSON^S DISEASE
     Dosage: 50 MG/DAY
     Route: 065

REACTIONS (9)
  - Obsessive-compulsive disorder [Unknown]
  - Agitation [Unknown]
  - Hypomania [Unknown]
  - Dyskinesia [Unknown]
  - Anxiety [Unknown]
  - Mood altered [Not Recovered/Not Resolved]
  - Dopamine dysregulation syndrome [Unknown]
  - Depressed mood [Unknown]
  - On and off phenomenon [Unknown]
